FAERS Safety Report 10762949 (Version 1)
Quarter: 2015Q1

REPORT INFORMATION
  Report Type: Spontaneous
  Country: DE (occurrence: DE)
  Receive Date: 20150204
  Receipt Date: 20150204
  Transmission Date: 20150721
  Serious: Yes (Other)
  Sender: FDA-Public Use
  Company Number: DE-WATSON-2015-01043

PATIENT
  Age: 22 Year
  Sex: Female
  Weight: 93 kg

DRUGS (2)
  1. CITALOPRAM [Suspect]
     Active Substance: CITALOPRAM HYDROBROMIDE
     Indication: DEPRESSION
     Dosage: 40 MG, DAILY
     Route: 048
     Dates: start: 20131019, end: 20140227
  2. FOLSAEURE [Concomitant]
     Active Substance: FOLIC ACID
     Indication: PROPHYLAXIS OF NEURAL TUBE DEFECT
     Dosage: UNK UNK, UNKNOWN
     Route: 048
     Dates: start: 20131019, end: 20131203

REACTIONS (6)
  - Premature labour [Recovered/Resolved]
  - Cervix haematoma uterine [Recovered/Resolved]
  - Abortion late [Recovered/Resolved]
  - Haemorrhage in pregnancy [Recovered/Resolved]
  - Preterm premature rupture of membranes [Recovered/Resolved]
  - Oligohydramnios [Recovered/Resolved]
